FAERS Safety Report 8471127-2 (Version None)
Quarter: 2012Q2

REPORT INFORMATION
  Report Type: 
  Country: None (occurrence: None)
  Receive Date: 20120621
  Receipt Date: 20120611
  Transmission Date: 20120825
  Serious: Yes (Other)
  Sender: FDA-Public Use
  Company Number: 2012P1040871

PATIENT
  Age: 8 Day
  Sex: Female

DRUGS (2)
  1. HYDROCORTISONE [Suspect]
     Indication: DYSPLASIA
     Dosage: 5 MG, BID, IV
     Route: 042
  2. HYDROCORTISONE [Suspect]
     Indication: RESPIRATORY DISTRESS
     Dosage: 5 MG, BID, IV
     Route: 042

REACTIONS (4)
  - LEFT VENTRICLE OUTFLOW TRACT OBSTRUCTION [None]
  - DISEASE RECURRENCE [None]
  - NEONATAL RESPIRATORY DISTRESS SYNDROME [None]
  - HYPERTROPHIC CARDIOMYOPATHY [None]
